FAERS Safety Report 9820806 (Version 1)
Quarter: 2013Q4

REPORT INFORMATION
  Report Type: Spontaneous
  Country: US (occurrence: None)
  Receive Date: 20131028
  Receipt Date: 20131028
  Transmission Date: 20140711
  Serious: Yes (Other)
  Sender: FDA-Public Use
  Company Number: 2013US001455

PATIENT
  Age: 58 Year
  Sex: Female
  Weight: 83 kg

DRUGS (8)
  1. ICLUSIG [Suspect]
     Indication: ACUTE LYMPHOCYTIC LEUKAEMIA
     Dosage: 45 MG, QD, ORAL
     Route: 048
     Dates: start: 20130114
  2. PEPCID (FAMOTIDINE) [Concomitant]
  3. CEFPODOXMINE (CEFPODOXIMINE) [Concomitant]
  4. VALCYTE (VALGANCICLOVIR HYDROCHLORIDE) (VALGANCICLOVIR HYDROCHLORIDE) [Concomitant]
  5. NEURONTIN (GABAPENTIN) [Concomitant]
  6. AMLODIPINE (AMLODIPINE) [Concomitant]
  7. TRAMADOL (TRAMADOL) [Concomitant]
  8. MERCAPTOPURINE (MERCAPTOPURINE) [Concomitant]

REACTIONS (11)
  - Visual acuity reduced [None]
  - Skin exfoliation [None]
  - Skin discolouration [None]
  - Weight increased [None]
  - Speech disorder [None]
  - Hepatic enzyme increased [None]
  - Blood pressure increased [None]
  - Dry skin [None]
  - Arthralgia [None]
  - Headache [None]
  - Fatigue [None]
